FAERS Safety Report 17258998 (Version 4)
Quarter: 2020Q1

REPORT INFORMATION
  Report Type: Spontaneous
  Country: DE (occurrence: DE)
  Receive Date: 20200110
  Receipt Date: 20200227
  Transmission Date: 20200409
  Serious: Yes (Other)
  Sender: FDA-Public Use
  Company Number: DE-PFIZER INC-2020008382

PATIENT
  Age: 77 Year
  Sex: Male

DRUGS (3)
  1. INSPRA [Suspect]
     Active Substance: EPLERENONE
     Dosage: 25-50 MG, ALTERNATE DAY
  2. INSPRA [Suspect]
     Active Substance: EPLERENONE
     Dosage: 25 MG, 2X/DAY (MORNING AND EVENING)
  3. INSPRA [Suspect]
     Active Substance: EPLERENONE
     Dosage: 50 MG, 2X/DAY

REACTIONS (7)
  - Oliguria [Unknown]
  - Insomnia [Unknown]
  - Blood pressure increased [Recovered/Resolved]
  - Prescribed overdose [Unknown]
  - Poor quality sleep [Unknown]
  - Glomerular filtration rate decreased [Unknown]
  - Hypotension [Unknown]
